FAERS Safety Report 9851065 (Version 2)
Quarter: 2014Q1

REPORT INFORMATION
  Report Type: Report from Study
  Country: NL (occurrence: NL)
  Receive Date: 20140128
  Receipt Date: 20140128
  Transmission Date: 20141002
  Serious: Yes (Hospitalization)
  Sender: FDA-Public Use
  Company Number: NL-ASTRAZENECA-2012SE95503

PATIENT
  Age: 23345 Day
  Sex: Male

DRUGS (8)
  1. AZD6140 [Suspect]
     Indication: CORONARY ARTERY DISEASE
     Route: 048
     Dates: start: 20110607, end: 20130320
  2. ACETYLSALICYLIC ACID [Suspect]
     Route: 048
     Dates: end: 20121217
  3. ACETYLSALICYLIC ACID [Suspect]
     Route: 048
     Dates: start: 20121219
  4. LIPITOR [Concomitant]
     Indication: HYPERCHOLESTEROLAEMIA
     Route: 048
  5. METOPROLOL [Concomitant]
     Indication: MYOCARDIAL INFARCTION
     Route: 048
  6. QUINAPRIL [Concomitant]
     Indication: HYPERTENSION
     Route: 048
  7. AMIODARONE [Concomitant]
     Indication: ARRHYTHMIA PROPHYLAXIS
     Route: 048
  8. OMEPRAZOL [Concomitant]
     Indication: PROPHYLAXIS
     Route: 048
     Dates: start: 20121118

REACTIONS (2)
  - Cardiac failure [Recovered/Resolved]
  - Haemoptysis [Recovered/Resolved]
